FAERS Safety Report 6393989-5 (Version None)
Quarter: 2009Q4

REPORT INFORMATION
  Report Type: 
  Country: None (occurrence: None)
  Receive Date: 20091008
  Receipt Date: 20091006
  Transmission Date: 20100525
  Serious: Yes (Disabling, Other)
  Sender: FDA-Public Use
  Company Number: US-PURDUE-USA_2009_0037931

PATIENT
  Sex: Female
  Weight: 55.51 kg

DRUGS (3)
  1. BETADINE [Suspect]
     Indication: PREOPERATIVE CARE
     Dosage: 3 SPRAY, SEE TEXT
     Route: 067
     Dates: start: 20070101
  2. COUMADIN [Concomitant]
     Indication: ARRHYTHMIA
  3. ANTIHYPERTENSIVES [Concomitant]
     Indication: HYPERTENSION

REACTIONS (4)
  - APPLICATION SITE IRRITATION [None]
  - BURNS THIRD DEGREE [None]
  - CAUSTIC INJURY [None]
  - SKIN IRRITATION [None]
